FAERS Safety Report 17845764 (Version 2)
Quarter: 2021Q1

REPORT INFORMATION
  Report Type: Spontaneous
  Country: US (occurrence: US)
  Receive Date: 20200601
  Receipt Date: 20210105
  Transmission Date: 20210419
  Serious: No
  Sender: FDA-Public Use
  Company Number: US-MYLANLABS-2020M1051017

PATIENT
  Age: 65 Year
  Sex: Female
  Weight: 58 kg

DRUGS (7)
  1. SIMVASTATIN. [Concomitant]
     Active Substance: SIMVASTATIN
     Dosage: UNK
  2. FULVESTRANT INJECTION [Suspect]
     Active Substance: FULVESTRANT
     Indication: BREAST CANCER
     Dosage: UNK UNK, MONTHLY
     Route: 030
     Dates: start: 20180810
  3. IBRANCE [Concomitant]
     Active Substance: PALBOCICLIB
     Dosage: UNK
  4. ALENDRONATE [Concomitant]
     Active Substance: ALENDRONATE SODIUM
     Dosage: UNK
  5. LOSARTAN. [Concomitant]
     Active Substance: LOSARTAN
     Dosage: UNK
  6. FULVESTRANT INJECTION [Suspect]
     Active Substance: FULVESTRANT
     Indication: PROPHYLAXIS
  7. FASLODEX [Concomitant]
     Active Substance: FULVESTRANT
     Dosage: UNK

REACTIONS (7)
  - Diarrhoea [Unknown]
  - Injection site mass [Not Recovered/Not Resolved]
  - Kyphosis [Recovering/Resolving]
  - Gait inability [Recovering/Resolving]
  - Injection site pain [Not Recovered/Not Resolved]
  - Injection site hypoaesthesia [Not Recovered/Not Resolved]
  - Adverse event [Not Recovered/Not Resolved]

NARRATIVE: CASE EVENT DATE: 20201123
